FAERS Safety Report 19749751 (Version 2)
Quarter: 2021Q3

REPORT INFORMATION
  Report Type: Report from Study
  Country: CA (occurrence: CA)
  Receive Date: 20210826
  Receipt Date: 20210908
  Transmission Date: 20211014
  Serious: Yes (Hospitalization, Other)
  Sender: FDA-Public Use
  Company Number: CA-NALPROPION PHARMACEUTICALS INC.-2021-013710

PATIENT

DRUGS (11)
  1. SYNTHROID [Concomitant]
     Active Substance: LEVOTHYROXINE SODIUM
     Indication: HYPERTHYROIDISM
     Dosage: 100 MCG,1 IN 1 D
     Route: 048
  2. ATORVASTATIN [Concomitant]
     Active Substance: ATORVASTATIN
     Indication: HYPERTENSION
     Dosage: 20 MG,1 IN 1 D
     Route: 048
  3. CONTRAVE [Suspect]
     Active Substance: BUPROPION HYDROCHLORIDE\NALTREXONE HYDROCHLORIDE
     Indication: WEIGHT CONTROL
     Dosage: 90/8 MG, 1 TABLET DAILY
     Route: 048
     Dates: start: 20210620, end: 20210626
  4. PINAVERIUM BROMIDE [Concomitant]
     Active Substance: PINAVERIUM BROMIDE
     Indication: COLITIS ULCERATIVE
     Dosage: 50 MG
     Route: 048
  5. CONTRAVE [Suspect]
     Active Substance: BUPROPION HYDROCHLORIDE\NALTREXONE HYDROCHLORIDE
     Dosage: 90/8MG (1 IN 12 HR)
     Route: 048
     Dates: start: 20210726, end: 20210802
  6. PANTOPRAZOLE [Concomitant]
     Active Substance: PANTOPRAZOLE
     Dosage: PRN (AS NEEDED) 80 MG, 1 IN 1 D)
     Route: 048
     Dates: start: 20210826
  7. CONTRAVE [Suspect]
     Active Substance: BUPROPION HYDROCHLORIDE\NALTREXONE HYDROCHLORIDE
     Dosage: 90/8 MG, 1 TABLET BID (TWICE A DAY)
     Route: 048
     Dates: start: 20210627, end: 20210703
  8. OZEMPIC [Concomitant]
     Active Substance: SEMAGLUTIDE
     Indication: DIABETES MELLITUS
     Dosage: (0.5 MG,1 IN 1 WK) 20?JUN?2021
     Route: 058
  9. CONTRAVE [Suspect]
     Active Substance: BUPROPION HYDROCHLORIDE\NALTREXONE HYDROCHLORIDE
     Dosage: 90/8 MG, 1 TABLET TID (THREE TIMES A DAY)
     Route: 048
     Dates: start: 20210704, end: 20210725
  10. CONTRAVE [Suspect]
     Active Substance: BUPROPION HYDROCHLORIDE\NALTREXONE HYDROCHLORIDE
     Dosage: 90/8 MG, SECOND ATTEMPT. (1 DOSAGE FORMS,1 IN 1 D)
     Route: 048
     Dates: start: 20210816
  11. PANTOPRAZOLE [Concomitant]
     Active Substance: PANTOPRAZOLE
     Indication: GASTROOESOPHAGEAL REFLUX DISEASE
     Dosage: PRN (AS NEEDED) (40 MG, 1 IN 1 D)
     Route: 048
     Dates: end: 20210825

REACTIONS (10)
  - Product dispensing error [Unknown]
  - Drug titration error [Unknown]
  - Food craving [Not Recovered/Not Resolved]
  - Inappropriate schedule of product administration [Unknown]
  - Gastrointestinal obstruction [Recovering/Resolving]
  - Swelling [Recovering/Resolving]
  - Product prescribing error [Unknown]
  - Pain [Recovering/Resolving]
  - Colitis ulcerative [Not Recovered/Not Resolved]
  - Asthenia [Unknown]

NARRATIVE: CASE EVENT DATE: 2021
